FAERS Safety Report 7037647-2 (Version None)
Quarter: 2010Q4

REPORT INFORMATION
  Report Type: 
  Country: None (occurrence: None)
  Receive Date: 20101011
  Receipt Date: 20100830
  Transmission Date: 20110411
  Serious: Yes (Death, Hospitalization)
  Sender: FDA-Public Use
  Company Number: US-BAXTER-2010BH003091

PATIENT
  Age: 79 Year
  Sex: Female
  Weight: 75 kg

DRUGS (48)
  1. HEPARIN SODIUM INJECTION [Suspect]
     Indication: HAEMODIALYSIS
     Route: 042
     Dates: start: 20071001, end: 20080201
  2. HEPARIN SODIUM INJECTION [Suspect]
     Indication: ANGIOPLASTY
     Route: 042
     Dates: start: 20071001, end: 20080201
  3. HEPARIN SODIUM INJECTION [Suspect]
     Indication: INTRAVENOUS CATHETER MANAGEMENT
     Route: 042
     Dates: start: 20071001, end: 20080201
  4. HEPARIN SODIUM INJECTION [Suspect]
     Indication: CATHETERISATION CARDIAC
     Route: 042
     Dates: start: 20071001, end: 20080201
  5. HEPARIN SODIUM INJECTION [Suspect]
     Route: 010
     Dates: start: 20080108, end: 20080108
  6. HEPARIN SODIUM INJECTION [Suspect]
     Route: 010
     Dates: start: 20080108, end: 20080108
  7. HEPARIN SODIUM INJECTION [Suspect]
     Route: 010
     Dates: start: 20080108, end: 20080108
  8. HEPARIN SODIUM INJECTION [Suspect]
     Route: 010
     Dates: start: 20080108, end: 20080108
  9. HEPARIN SODIUM INJECTION [Suspect]
     Route: 040
     Dates: start: 20080109, end: 20080109
  10. HEPARIN SODIUM INJECTION [Suspect]
     Route: 040
     Dates: start: 20080109, end: 20080109
  11. HEPARIN SODIUM INJECTION [Suspect]
     Route: 040
     Dates: start: 20080109, end: 20080109
  12. HEPARIN SODIUM INJECTION [Suspect]
     Route: 040
     Dates: start: 20080109, end: 20080109
  13. HEPARIN SODIUM INJECTION [Suspect]
     Route: 042
     Dates: start: 20071203, end: 20071203
  14. HEPARIN SODIUM INJECTION [Suspect]
     Route: 042
     Dates: start: 20071203, end: 20071203
  15. HEPARIN SODIUM INJECTION [Suspect]
     Route: 042
     Dates: start: 20071203, end: 20071203
  16. HEPARIN SODIUM INJECTION [Suspect]
     Route: 042
     Dates: start: 20071203, end: 20071203
  17. HEPARIN SODIUM INJECTION [Suspect]
     Route: 040
     Dates: start: 20071227, end: 20071227
  18. HEPARIN SODIUM INJECTION [Suspect]
     Route: 040
     Dates: start: 20071227, end: 20071227
  19. HEPARIN SODIUM INJECTION [Suspect]
     Route: 040
     Dates: start: 20071227, end: 20071227
  20. HEPARIN SODIUM INJECTION [Suspect]
     Route: 040
     Dates: start: 20071227, end: 20071227
  21. HEPARIN SODIUM INJECTION [Suspect]
     Route: 010
     Dates: start: 20080110, end: 20080110
  22. HEPARIN SODIUM INJECTION [Suspect]
     Route: 010
     Dates: start: 20080110, end: 20080110
  23. HEPARIN SODIUM INJECTION [Suspect]
     Route: 010
     Dates: start: 20080110, end: 20080110
  24. HEPARIN SODIUM INJECTION [Suspect]
     Route: 010
     Dates: start: 20080110, end: 20080110
  25. ALLOPURINOL [Concomitant]
     Indication: PRODUCT USED FOR UNKNOWN INDICATION
     Route: 065
  26. ASPIRIN [Concomitant]
     Indication: PRODUCT USED FOR UNKNOWN INDICATION
     Route: 065
  27. CELEBREX [Concomitant]
     Indication: PRODUCT USED FOR UNKNOWN INDICATION
     Route: 065
  28. COREG [Concomitant]
     Indication: PRODUCT USED FOR UNKNOWN INDICATION
     Route: 065
  29. DARVOCET-N 100 [Concomitant]
     Indication: PRODUCT USED FOR UNKNOWN INDICATION
     Route: 065
  30. VALSARTAN [Concomitant]
     Indication: PRODUCT USED FOR UNKNOWN INDICATION
     Route: 065
  31. FERROUS SULFATE [Concomitant]
     Indication: PRODUCT USED FOR UNKNOWN INDICATION
     Route: 065
  32. FOLIC ACID [Concomitant]
     Indication: PRODUCT USED FOR UNKNOWN INDICATION
     Route: 065
  33. ISOSORBIDE MONONITRATE [Concomitant]
     Indication: PRODUCT USED FOR UNKNOWN INDICATION
     Route: 065
  34. LIPITOR [Concomitant]
     Indication: PRODUCT USED FOR UNKNOWN INDICATION
     Route: 065
  35. NEURONTIN [Concomitant]
     Indication: PRODUCT USED FOR UNKNOWN INDICATION
     Route: 065
  36. NITROGLYCERIN [Concomitant]
     Indication: PRODUCT USED FOR UNKNOWN INDICATION
     Route: 065
  37. PLAVIX [Concomitant]
     Indication: PRODUCT USED FOR UNKNOWN INDICATION
     Route: 065
  38. PREVACID [Concomitant]
     Indication: PRODUCT USED FOR UNKNOWN INDICATION
     Route: 065
  39. NEPHROCAPS [Concomitant]
     Indication: PRODUCT USED FOR UNKNOWN INDICATION
     Route: 065
  40. SYNTHROID [Concomitant]
     Indication: PRODUCT USED FOR UNKNOWN INDICATION
     Route: 065
  41. TRICOR [Concomitant]
     Indication: PRODUCT USED FOR UNKNOWN INDICATION
     Route: 065
  42. VITAMIN B COMPLEX CAP [Concomitant]
     Indication: PRODUCT USED FOR UNKNOWN INDICATION
     Route: 065
  43. TYLENOL [Concomitant]
     Indication: PRODUCT USED FOR UNKNOWN INDICATION
     Route: 065
  44. XANAX [Concomitant]
     Indication: PRODUCT USED FOR UNKNOWN INDICATION
     Route: 065
  45. LEVAQUIN [Concomitant]
     Indication: WHITE BLOOD CELL COUNT INCREASED
     Route: 042
  46. EPOGEN [Concomitant]
     Indication: PRODUCT USED FOR UNKNOWN INDICATION
     Route: 042
  47. RENAGEL [Concomitant]
     Indication: PRODUCT USED FOR UNKNOWN INDICATION
     Route: 065
  48. ZEMPLAR [Concomitant]
     Indication: PRODUCT USED FOR UNKNOWN INDICATION
     Route: 065

REACTIONS (5)
  - CEREBROVASCULAR ACCIDENT [None]
  - CEREBROVASCULAR DISORDER [None]
  - CORONARY ARTERY DISEASE [None]
  - PERIPHERAL ARTERIAL OCCLUSIVE DISEASE [None]
  - RENAL FAILURE CHRONIC [None]
